FAERS Safety Report 9130039 (Version 3)
Quarter: 2013Q2

REPORT INFORMATION
  Report Type: Report from Study
  Country: US (occurrence: US)
  Receive Date: 20130228
  Receipt Date: 20130423
  Transmission Date: 20140414
  Serious: Yes (Hospitalization)
  Sender: FDA-Public Use
  Company Number: US-ABBOTT-13P-163-1052654-00

PATIENT
  Sex: Male

DRUGS (2)
  1. HUMIRA [Suspect]
     Indication: CROHN^S DISEASE
     Route: 058
     Dates: start: 201208
  2. HUMIRA [Suspect]
     Route: 058
     Dates: start: 201301

REACTIONS (5)
  - Unevaluable event [Unknown]
  - Incontinence [Recovered/Resolved]
  - Wound [Recovered/Resolved]
  - Superinfection [Unknown]
  - Crohn^s disease [Unknown]
